FAERS Safety Report 6135113-X (Version None)
Quarter: 2009Q1

REPORT INFORMATION
  Report Type: 
  Country: None (occurrence: None)
  Receive Date: 20090327
  Receipt Date: 20090324
  Transmission Date: 20090719
  Serious: Yes (Death, Hospitalization)
  Sender: FDA-Public Use
  Company Number: GB-JNJFOC-20090305792

PATIENT
  Age: 50 Year
  Sex: Female

DRUGS (4)
  1. PREZISTA [Suspect]
     Indication: HIV INFECTION
     Route: 048
  2. INTELENCE [Suspect]
     Indication: HIV INFECTION
     Route: 048
  3. RALTEGRAVIR [Suspect]
     Indication: HIV INFECTION
     Route: 065
  4. KALETRA [Suspect]
     Indication: HIV INFECTION
     Route: 065

REACTIONS (5)
  - ARTHRALGIA [None]
  - EYE DISORDER [None]
  - PARAESTHESIA [None]
  - RASH [None]
  - TOXIC EPIDERMAL NECROLYSIS [None]
